FAERS Safety Report 19250195 (Version 1)
Quarter: 2021Q2

REPORT INFORMATION
  Report Type: Spontaneous
  Country: US (occurrence: US)
  Receive Date: 20210512
  Receipt Date: 20210512
  Transmission Date: 20210717
  Serious: No
  Sender: FDA-Public Use
  Company Number: US-ELI_LILLY_AND_COMPANY-US202105002768

PATIENT
  Age: 66 Year
  Sex: Female

DRUGS (4)
  1. MECLIZINE [Concomitant]
     Active Substance: MECLIZINE HYDROCHLORIDE
     Indication: VERTIGO
     Dosage: UNK, UNKNOWN
     Route: 065
  2. BETHANECHOL [Concomitant]
     Active Substance: BETHANECHOL
     Indication: PRODUCT USED FOR UNKNOWN INDICATION
     Dosage: UNK, UNKNOWN
     Route: 065
  3. BAMLANIVIMAB. [Suspect]
     Active Substance: BAMLANIVIMAB
     Indication: COVID-19
     Dosage: UNK UNK, UNKNOWN
     Route: 042
     Dates: start: 20201210, end: 20201210
  4. TAMOXIFEN [Concomitant]
     Active Substance: TAMOXIFEN
     Indication: PRODUCT USED FOR UNKNOWN INDICATION
     Dosage: UNK, UNKNOWN
     Route: 065

REACTIONS (18)
  - Vertigo [Recovered/Resolved]
  - Dry throat [Unknown]
  - Pyrexia [Recovered/Resolved]
  - Alopecia [Not Recovered/Not Resolved]
  - Dizziness [Recovered/Resolved]
  - Faeces discoloured [Recovered/Resolved]
  - Dizziness [Recovered/Resolved]
  - Nausea [Recovered/Resolved]
  - Diarrhoea [Recovered/Resolved]
  - Depressed level of consciousness [Not Recovered/Not Resolved]
  - Cough [Recovering/Resolving]
  - Skin irritation [Not Recovered/Not Resolved]
  - Infusion site haemorrhage [Recovered/Resolved]
  - Crying [Unknown]
  - Constipation [Recovering/Resolving]
  - Blood pressure fluctuation [Not Recovered/Not Resolved]
  - Weight decreased [Unknown]
  - Pruritus [Not Recovered/Not Resolved]

NARRATIVE: CASE EVENT DATE: 20201210
